FAERS Safety Report 19395583 (Version 5)
Quarter: 2022Q2

REPORT INFORMATION
  Report Type: Report from Study
  Country: US (occurrence: US)
  Receive Date: 20210609
  Receipt Date: 20220622
  Transmission Date: 20220721
  Serious: Yes (Hospitalization, Other)
  Sender: FDA-Public Use
  Company Number: US-SHIRE-US202010711

PATIENT
  Age: 32 Year
  Sex: Female
  Weight: 52 kg

DRUGS (10)
  1. TEDUGLUTIDE [Suspect]
     Active Substance: TEDUGLUTIDE
     Indication: Short-bowel syndrome
     Dosage: 5 MILLIGRAM, QD
     Route: 042
     Dates: start: 20190531
  2. TEDUGLUTIDE [Suspect]
     Active Substance: TEDUGLUTIDE
     Indication: Short-bowel syndrome
     Dosage: 5 MILLIGRAM, QD
     Route: 042
     Dates: start: 20190531
  3. TEDUGLUTIDE [Suspect]
     Active Substance: TEDUGLUTIDE
     Indication: Short-bowel syndrome
     Dosage: 5 MILLIGRAM, QD
     Route: 042
     Dates: start: 20190531
  4. TEDUGLUTIDE [Suspect]
     Active Substance: TEDUGLUTIDE
     Indication: Short-bowel syndrome
     Dosage: 5 MILLIGRAM, QD
     Route: 042
     Dates: start: 20190531
  5. EMSAM [Concomitant]
     Active Substance: SELEGILINE
     Indication: Product used for unknown indication
  6. XIFAXAN [Concomitant]
     Active Substance: RIFAXIMIN
     Indication: Diarrhoea
     Dosage: 550 MILLIGRAM, BID
     Route: 048
     Dates: start: 20191108
  7. AMBIEN [Concomitant]
     Active Substance: ZOLPIDEM TARTRATE
     Indication: Sleep disorder
     Dosage: 5.0 MILLIGRAM, PRN
     Route: 048
     Dates: start: 20180917
  8. SELEGILINE [Concomitant]
     Active Substance: SELEGILINE
     Indication: Product used for unknown indication
     Dosage: 6.0 MILLIGRAM, QD
     Route: 062
     Dates: start: 20191224, end: 20200123
  9. SELEGILINE [Concomitant]
     Active Substance: SELEGILINE
     Dosage: 12 MILLIGRAM, QD
     Route: 062
     Dates: start: 20210305
  10. ZOFRAN [Concomitant]
     Active Substance: ONDANSETRON HYDROCHLORIDE
     Indication: Nausea
     Dosage: 4.0 MILLIGRAM, PRN
     Route: 048
     Dates: start: 20180917

REACTIONS (2)
  - Vascular device infection [Recovered/Resolved]
  - Myalgia [Recovered/Resolved]

NARRATIVE: CASE EVENT DATE: 20191216
